FAERS Safety Report 8814502 (Version 2)
Quarter: 2012Q4

REPORT INFORMATION
  Report Type: 
  Country: AT (occurrence: AT)
  Receive Date: 20120928
  Receipt Date: 20121029
  Transmission Date: 20130627
  Serious: Yes (Hospitalization)
  Sender: FDA-Public Use
  Company Number: PHHY2012AT083956

PATIENT
  Age: 64 Year
  Sex: Female
  Weight: 74 kg

DRUGS (4)
  1. AFINITOR [Suspect]
     Indication: PANCREATIC NEUROENDOCRINE TUMOUR
     Dosage: 10 mg, QD
     Route: 048
     Dates: start: 20120302, end: 20120330
  2. AFINITOR [Suspect]
     Dosage: 5 mg, QD
     Route: 048
     Dates: start: 20120330, end: 20120609
  3. INSULATARD PEN [Concomitant]
     Dosage: 30 IE in the morning and 20 IE in the evening
     Route: 058
     Dates: start: 20120616
  4. NOVORAPID [Concomitant]
     Dosage: 20 IE in the morning, 16 IE in the noon, 16 IE in the night
     Route: 058

REACTIONS (3)
  - Ketoacidosis [Recovered/Resolved]
  - Blood glucose increased [Recovered/Resolved]
  - Bacterial sepsis [Recovered/Resolved]
